FAERS Safety Report 18137440 (Version 2)
Quarter: 2020Q3

REPORT INFORMATION
  Report Type: Report from Study
  Country: None (occurrence: US)
  Receive Date: 20200812
  Receipt Date: 20200820
  Transmission Date: 20201103
  Serious: Yes (Other)
  Sender: FDA-Public Use
  Company Number: US-ABBVIE-20K-163-3481403-00

PATIENT
  Age: 26 Year
  Sex: Female
  Weight: 97.16 kg

DRUGS (6)
  1. ALBUTEROL. [Concomitant]
     Active Substance: ALBUTEROL
     Indication: ASTHMA
     Dosage: INHALER
  2. HUMIRA [Suspect]
     Active Substance: ADALIMUMAB
     Route: 058
     Dates: start: 20200708
  3. BREO ELLIPTA [Concomitant]
     Active Substance: FLUTICASONE FUROATE\VILANTEROL TRIFENATATE
     Indication: ASTHMA
     Dosage: INHALER
  4. HUMIRA [Suspect]
     Active Substance: ADALIMUMAB
     Indication: CROHN^S DISEASE
     Route: 058
     Dates: start: 20200529, end: 202006
  5. ACYCLOVIR. [Concomitant]
     Active Substance: ACYCLOVIR
     Indication: ORAL HERPES
  6. IRON [Concomitant]
     Active Substance: IRON
     Indication: ANAEMIA

REACTIONS (19)
  - Joint range of motion decreased [Not Recovered/Not Resolved]
  - Depressed mood [Recovered/Resolved]
  - Fatigue [Not Recovered/Not Resolved]
  - Nausea [Not Recovered/Not Resolved]
  - Night sweats [Recovered/Resolved]
  - Wound [Not Recovered/Not Resolved]
  - Pruritus [Unknown]
  - Rash papular [Recovered/Resolved]
  - Subcutaneous abscess [Not Recovered/Not Resolved]
  - Constipation [Not Recovered/Not Resolved]
  - Abnormal loss of weight [Not Recovered/Not Resolved]
  - Hidradenitis [Not Recovered/Not Resolved]
  - Decreased appetite [Not Recovered/Not Resolved]
  - Insomnia [Recovered/Resolved]
  - Anaemia [Not Recovered/Not Resolved]
  - Abdominal pain [Not Recovered/Not Resolved]
  - Loss of personal independence in daily activities [Not Recovered/Not Resolved]
  - Anxiety [Recovering/Resolving]
  - Device issue [Unknown]

NARRATIVE: CASE EVENT DATE: 2020
